FAERS Safety Report 4742073-2 (Version None)
Quarter: 2005Q3

REPORT INFORMATION
  Report Type: 
  Country: None (occurrence: None)
  Receive Date: 20050810
  Receipt Date: 20050810
  Transmission Date: 20060218
  Serious: Yes (Hospitalization)
  Sender: FDA-Public Use
  Company Number: None

PATIENT
  Age: 86 Year
  Sex: Male
  Weight: 80.4 kg

DRUGS (13)
  1. HEPARIN [Suspect]
     Indication: DEEP VEIN THROMBOSIS
     Dosage: PROTOCOL
     Dates: start: 20050418
  2. ALOH /MGOH/SIMTH [Concomitant]
  3. TEMAZEPAM [Concomitant]
  4. MILK OF MAGNESIA TAB [Concomitant]
  5. ACETAMINOPHEN [Concomitant]
  6. SIMVASTATIN [Concomitant]
  7. RANITIDINE [Concomitant]
  8. OCUVITE [Concomitant]
  9. METOPROLOL TRATRATE [Concomitant]
  10. NITROGLYCERIN [Concomitant]
  11. ALBUTEROL SULFATE AND IPRATROPIUM BROMIDE [Concomitant]
  12. CLOPIDOREL BISULFATE [Concomitant]
  13. TERAZOSIN HCL [Concomitant]

REACTIONS (1)
  - HAEMATURIA [None]
